FAERS Safety Report 6171144-1 (Version None)
Quarter: 2009Q2

REPORT INFORMATION
  Report Type: 
  Country: None (occurrence: None)
  Receive Date: 20090428
  Receipt Date: 20090428
  Transmission Date: 20091009
  Serious: Yes (Life-Threatening, Hospitalization)
  Sender: FDA-Public Use
  Company Number: None

PATIENT
  Age: 40 Year
  Sex: Female
  Weight: 81.6475 kg

DRUGS (2)
  1. CYMBALTA [Suspect]
     Indication: DEPRESSION
     Dosage: 1 PILL 1X DAILY PO
     Route: 048
     Dates: start: 20070901, end: 20071101
  2. EFFEXOR [Suspect]
     Indication: FIBROMYALGIA
     Dosage: 1 PILL 1X DAILY PO
     Route: 048
     Dates: start: 20070101, end: 20070315

REACTIONS (16)
  - BLOOD GLUCOSE DECREASED [None]
  - COMA [None]
  - DEHYDRATION [None]
  - DIABETES MELLITUS [None]
  - HYPERHIDROSIS [None]
  - LETHARGY [None]
  - MICTURITION URGENCY [None]
  - MUSCLE TWITCHING [None]
  - NEURALGIA [None]
  - NOCTURIA [None]
  - PAIN [None]
  - QUALITY OF LIFE DECREASED [None]
  - SEROTONIN SYNDROME [None]
  - SYNCOPE [None]
  - WATER POLLUTION [None]
  - WEIGHT DECREASED [None]
